FAERS Safety Report 16805945 (Version 1)
Quarter: 2019Q4

REPORT INFORMATION
  Report Type: Spontaneous
  Country: US (occurrence: US)
  Receive Date: 20190913
  Receipt Date: 20190913
  Transmission Date: 20200122
  Serious: No
  Sender: FDA-Public Use
  Company Number: None

PATIENT
  Age: 78 Year
  Sex: Male
  Weight: 77.4 kg

DRUGS (6)
  1. CRESTOR [Concomitant]
     Active Substance: ROSUVASTATIN CALCIUM
  2. MICARDIS HCT [Concomitant]
     Active Substance: HYDROCHLOROTHIAZIDE\TELMISARTAN
  3. LOTEMAX SM [Suspect]
     Active Substance: LOTEPREDNOL ETABONATE
     Indication: OCULAR HYPERAEMIA
     Dosage: ?          QUANTITY:1 DROP(S);?
     Route: 047
     Dates: start: 20190826, end: 20190902
  4. LOTEMAX SM [Suspect]
     Active Substance: LOTEPREDNOL ETABONATE
     Indication: EYE PRURITUS
     Dosage: ?          QUANTITY:1 DROP(S);?
     Route: 047
     Dates: start: 20190826, end: 20190902
  5. VITAMIN D [Concomitant]
     Active Substance: VITAMIN D NOS
  6. NIACIN. [Concomitant]
     Active Substance: NIACIN

REACTIONS (3)
  - Eye swelling [None]
  - Visual impairment [None]
  - Eye discharge [None]

NARRATIVE: CASE EVENT DATE: 20190906
